FAERS Safety Report 23452236 (Version 4)
Quarter: 2024Q4

REPORT INFORMATION
  Report Type: Report from Study
  Country: US (occurrence: US)
  Receive Date: 20240129
  Receipt Date: 20241121
  Transmission Date: 20250114
  Serious: Yes (Death, Other)
  Sender: GILEAD
  Company Number: US-GILEAD-2023-0637876

PATIENT
  Age: 84 Year
  Sex: Male

DRUGS (4)
  1. AXICABTAGENE CILOLEUCEL [Suspect]
     Active Substance: AXICABTAGENE CILOLEUCEL
     Indication: Non-Hodgkin^s lymphoma
     Dosage: UNK
     Route: 042
  2. CYCLOPHOSPHAMIDE [Concomitant]
     Active Substance: CYCLOPHOSPHAMIDE
     Indication: Bone marrow conditioning regimen
  3. FLUDARABINE [Concomitant]
     Active Substance: FLUDARABINE PHOSPHATE
     Indication: Bone marrow conditioning regimen
  4. BENDAMUSTINE;RITUXIMAB [Concomitant]
     Indication: Chemotherapy
     Dosage: SYSTEMIC

REACTIONS (2)
  - Myelodysplastic syndrome [Fatal]
  - Acute myeloid leukaemia [Fatal]
